FAERS Safety Report 4381364-4 (Version None)
Quarter: 2004Q2

REPORT INFORMATION
  Report Type: 
  Country: None (occurrence: None)
  Receive Date: 20040617
  Receipt Date: 20040617
  Transmission Date: 20050107
  Serious: Yes (Hospitalization)
  Sender: FDA-Public Use
  Company Number: None

PATIENT
  Sex: Male
  Weight: 100.6985 kg

DRUGS (6)
  1. CISPLATIN [Suspect]
     Indication: TONSIL CANCER
     Dosage: 200 MG IV Q 21 DAY
     Route: 042
     Dates: start: 20040524
  2. CISPLATIN [Suspect]
     Indication: TONSIL CANCER
     Dosage: 200 MG IV Q 21 DAY
     Route: 042
     Dates: start: 20040614
  3. DECADRON [Concomitant]
  4. KYTRIL [Concomitant]
  5. MANNITOL [Concomitant]
  6. NS [Concomitant]

REACTIONS (3)
  - MUCOSAL INFLAMMATION [None]
  - NAUSEA [None]
  - VOMITING [None]
